FAERS Safety Report 12297682 (Version 2)
Quarter: 2024Q1

REPORT INFORMATION
  Report Type: Spontaneous
  Country: US (occurrence: US)
  Receive Date: 20160422
  Receipt Date: 20240212
  Transmission Date: 20240409
  Serious: Yes (Other)
  Sender: FDA-Public Use
  Company Number: US-MYLANLABS-2016M1016585

PATIENT
  Sex: Female

DRUGS (5)
  1. AZITHROMYCIN [Suspect]
     Active Substance: AZITHROMYCIN
     Indication: Pertussis
     Dosage: UNK
     Route: 064
  2. SOTALOL [Suspect]
     Active Substance: SOTALOL
     Indication: Supraventricular extrasystoles
     Dosage: 120 MILLIGRAM
     Route: 064
  3. DIGOXIN [Suspect]
     Active Substance: DIGOXIN
     Indication: Supraventricular extrasystoles
     Dosage: 250 MICROGRAM, UNK
     Route: 064
  4. DIPHTHERIA AND TETANUS TOXOIDS AND ACELLULAR PERTUSSIS VACCINE ADSORBE [Suspect]
     Active Substance: DIPHTHERIA AND TETANUS TOXOIDS AND ACELLULAR PERTUSSIS VACCINE ADSORBED
     Indication: Pertussis immunisation
     Dosage: UNK
     Route: 064
  5. MISOPROSTOL [Suspect]
     Active Substance: MISOPROSTOL
     Indication: Induction of cervix ripening
     Dosage: 25MICROG Q6
     Route: 064

REACTIONS (2)
  - Tachycardia foetal [Unknown]
  - Foetal exposure during pregnancy [Recovered/Resolved]
